FAERS Safety Report 25651910 (Version 1)
Quarter: 2025Q3

REPORT INFORMATION
  Report Type: Spontaneous
  Country: EG (occurrence: EG)
  Receive Date: 20250806
  Receipt Date: 20250806
  Transmission Date: 20251020
  Serious: Yes (Other)
  Sender: AMGEN
  Company Number: EG-PFIZER INC-PV202500093086

PATIENT
  Age: 69 Year
  Sex: Female

DRUGS (13)
  1. ENBREL [Suspect]
     Active Substance: ETANERCEPT
     Indication: Rheumatoid arthritis
     Dosage: 50 MG, WEEKLY
     Route: 058
  2. Betafos [Concomitant]
     Indication: Product used for unknown indication
     Route: 030
  3. PREDNISOLONE [Concomitant]
     Active Substance: PREDNISOLONE
     Indication: Product used for unknown indication
     Dosage: 5 MG, 2X/DAY (ONE TABLET IN THE MORNING AND IN THE EVENING)
     Route: 065
  4. LEFLUNOMIDE [Concomitant]
     Active Substance: LEFLUNOMIDE
     Indication: Product used for unknown indication
     Dosage: 20 MG, DAILY
     Route: 065
  5. Colosalazine ec [Concomitant]
     Indication: Product used for unknown indication
     Dosage: 500 MG, 2X/DAY (2 TABLETS IN THE MORNING AND IN THE EVENING)
     Route: 065
  6. ATORVASTATIN CALCIUM\EZETIMIBE [Concomitant]
     Active Substance: ATORVASTATIN CALCIUM\EZETIMIBE
     Indication: Product used for unknown indication
     Dosage: UNK, 1X/DAY (ONE TABLET AT NIGHT)
     Route: 065
  7. PANTOPRAZOLE SODIUM [Concomitant]
     Active Substance: PANTOPRAZOLE SODIUM
     Indication: Product used for unknown indication
     Dosage: 40 MG, 1X/DAY (ONE TABLET AFTER BREAKFAST)
     Route: 065
  8. Calcid [Concomitant]
     Indication: Product used for unknown indication
     Dosage: 1 DF, 1X/DAY (ONE TABLET AFTER DINNER)
     Route: 065
  9. RAMIPRIL [Concomitant]
     Active Substance: RAMIPRIL
     Indication: Product used for unknown indication
     Dosage: 1.25 MG, 1X/DAY (ONE TABLET AT NIGHT)
     Route: 065
  10. BISOPROLOL FUMARATE [Concomitant]
     Active Substance: BISOPROLOL FUMARATE
     Indication: Product used for unknown indication
     Dosage: 2.5 MG, 1X/DAY (ONE TABLET IN THE MORNING)
     Route: 065
  11. TORSEMIDE [Concomitant]
     Active Substance: TORSEMIDE
  12. FERRO-SANOL DUODENAL [Concomitant]
     Active Substance: FERROUS GLYCINE SULFATE
     Indication: Product used for unknown indication
     Dosage: 1 DF, 1X/DAY (ONE TABLET AFTER BREAKFAST)
     Route: 065
  13. ASPIRIN [Concomitant]
     Active Substance: ASPIRIN
     Dosage: 81 MG, 1X/DAY (ONE TABLET AFTER LUNCH)

REACTIONS (1)
  - Impaired healing [Unknown]
